FAERS Safety Report 7864916-6 (Version None)
Quarter: 2011Q4

REPORT INFORMATION
  Report Type: 
  Country: None (occurrence: None)
  Receive Date: 20111028
  Receipt Date: 20100917
  Transmission Date: 20120403
  Serious: No
  Sender: FDA-Public Use
  Company Number: US-GLAXOSMITHKLINE-A0881684A

PATIENT
  Age: 74 Year
  Sex: Female

DRUGS (11)
  1. DEXLANSOPRAZOLE [Concomitant]
  2. DIPROLENE GEL [Concomitant]
  3. PERCOCET [Concomitant]
  4. AMLODIPINE [Concomitant]
  5. MULTI-VITAMIN [Concomitant]
  6. ADVAIR DISKUS 100/50 [Suspect]
     Indication: ASTHMA
     Dosage: 1PUFF TWICE PER DAY
     Route: 055
     Dates: start: 20100901
  7. ASPIRIN [Concomitant]
  8. CALCIUM CARBONATE [Concomitant]
  9. HYDROCHLOROTHIAZIDE [Concomitant]
  10. VITAMIN D [Concomitant]
  11. DESTOLIT [Concomitant]

REACTIONS (3)
  - CARDIAC FLUTTER [None]
  - HYPERHIDROSIS [None]
  - DIZZINESS [None]
